FAERS Safety Report 9494905 (Version 2)
Quarter: 2020Q3

REPORT INFORMATION
  Report Type: Spontaneous
  Country: FR (occurrence: FR)
  Receive Date: 20130903
  Receipt Date: 20140106
  Transmission Date: 20201105
  Serious: Yes (Life-Threatening, Hospitalization, Other)
  Sender: FDA-Public Use
  Company Number: FR-ASTRAZENECA-2013SE66510

PATIENT
  Age: 376 Month
  Sex: Female

DRUGS (16)
  1. DIPRIVAN [Suspect]
     Active Substance: PROPOFOL
     Indication: ANAESTHESIA
     Route: 042
     Dates: start: 20120108
  2. TAGAMET [Suspect]
     Active Substance: CIMETIDINE
     Indication: SPINAL ANAESTHESIA
     Route: 042
     Dates: start: 20120108
  3. CEFAZOLIN [Suspect]
     Active Substance: CEFAZOLIN
     Indication: ANTIBIOTIC PROPHYLAXIS
     Route: 042
     Dates: start: 20120108
  4. TRACRIUM [Suspect]
     Active Substance: ATRACURIUM BESYLATE
     Indication: ANAESTHESIA
     Route: 042
  5. BUPIVACAINE AGUETTANT [Suspect]
     Active Substance: BUPIVACAINE HYDROCHLORIDE
     Indication: SPINAL ANAESTHESIA
     Route: 042
     Dates: start: 20120108
  6. PABAL [Suspect]
     Active Substance: CARBETOCIN
     Indication: UTERINE ATONY
     Route: 042
     Dates: start: 20120108
  7. ETOMIDATE. [Suspect]
     Active Substance: ETOMIDATE
     Route: 065
     Dates: start: 20120108
  8. CELOCURINE (SUXAMETHONIUM) [Suspect]
     Active Substance: SUCCINYLCHOLINE
     Indication: ENDOTRACHEAL INTUBATION
     Route: 042
     Dates: start: 20120108
  9. NOVOSEVEN [Suspect]
     Active Substance: COAGULATION FACTOR VIIA RECOMBINANT HUMAN
     Indication: THIRD STAGE POSTPARTUM HAEMORRHAGE
     Route: 042
     Dates: start: 20120108
  10. NALADOR [Suspect]
     Active Substance: SULPROSTONE
     Route: 042
     Dates: start: 20120108
  11. EPHEDRINE. [Suspect]
     Active Substance: EPHEDRINE
     Indication: SPINAL ANAESTHESIA
     Route: 042
     Dates: start: 20120108
  12. CLOTTAFACT [Suspect]
     Active Substance: FIBRINOGEN HUMAN
     Indication: THIRD STAGE POSTPARTUM HAEMORRHAGE
     Route: 042
     Dates: start: 20120108
  13. EXACYL [Suspect]
     Active Substance: TRANEXAMIC ACID
     Indication: POSTPARTUM HAEMORRHAGE
     Route: 042
     Dates: start: 20120108
  14. SEVOFLURANE BAXTER [Suspect]
     Active Substance: SEVOFLURANE
     Indication: ANAESTHESIA
     Route: 055
     Dates: start: 20120108
  15. NEOSYNEPHRINE [Suspect]
     Active Substance: PHENYLEPHRINE HYDROCHLORIDE
     Dates: start: 20120108
  16. SUFENTA [Suspect]
     Active Substance: SUFENTANIL CITRATE
     Dates: start: 20120108

REACTIONS (7)
  - Respiratory failure [Recovering/Resolving]
  - Shock haemorrhagic [Recovering/Resolving]
  - Urinary tract infection [Recovering/Resolving]
  - Uterine atony [Recovering/Resolving]
  - Acute kidney injury [Recovered/Resolved]
  - Postpartum haemorrhage [Recovering/Resolving]
  - Coagulopathy [Recovering/Resolving]

NARRATIVE: CASE EVENT DATE: 201201
